FAERS Safety Report 24387075 (Version 3)
Quarter: 2024Q4

REPORT INFORMATION
  Report Type: Spontaneous
  Country: MX (occurrence: MX)
  Receive Date: 20241002
  Receipt Date: 20241105
  Transmission Date: 20250114
  Serious: Yes (Disabling)
  Sender: ABBVIE
  Company Number: MX-ABBVIE-5944422

PATIENT
  Age: 33 Year
  Sex: Female

DRUGS (1)
  1. BOTOX [Suspect]
     Active Substance: ONABOTULINUMTOXINA
     Indication: Bruxism
     Dosage: TIME INTERVAL: AS NECESSARY
     Route: 030
     Dates: start: 202208, end: 202208

REACTIONS (9)
  - Facial paralysis [Recovered/Resolved with Sequelae]
  - Off label use [Unknown]
  - Swelling face [Recovered/Resolved]
  - Nodule [Recovering/Resolving]
  - Musculoskeletal stiffness [Recovered/Resolved]
  - Ulcer [Unknown]
  - Pain [Recovered/Resolved]
  - Swelling face [Recovering/Resolving]
  - Injection site injury [Not Recovered/Not Resolved]

NARRATIVE: CASE EVENT DATE: 20220801
